FAERS Safety Report 5637129-6 (Version None)
Quarter: 2008Q1

REPORT INFORMATION
  Report Type: 
  Country: None (occurrence: None)
  Receive Date: 20080225
  Receipt Date: 20080212
  Transmission Date: 20080703
  Serious: Yes (Other)
  Sender: FDA-Public Use
  Company Number: CA-ROCHE-547645

PATIENT
  Age: 67 Year
  Sex: Male

DRUGS (4)
  1. PEGASYS [Suspect]
     Indication: HEPATITIS C
     Route: 058
     Dates: start: 20070416, end: 20080128
  2. COPEGUS [Suspect]
     Indication: HEPATITIS C
     Dosage: DOSAGE: 5X OD
     Route: 048
     Dates: start: 20070416, end: 20080128
  3. EPREX [Concomitant]
     Indication: HAEMOGLOBIN DECREASED
     Dates: start: 20070801
  4. IMOVANE [Concomitant]
     Route: 048
     Dates: start: 20070101

REACTIONS (3)
  - HAEMOGLOBIN DECREASED [None]
  - INSOMNIA [None]
  - LUNG NEOPLASM MALIGNANT [None]
